FAERS Safety Report 23155047 (Version 2)
Quarter: 2023Q4

REPORT INFORMATION
  Report Type: Spontaneous
  Country: US (occurrence: US)
  Receive Date: 20231107
  Receipt Date: 20231204
  Transmission Date: 20240110
  Serious: Yes (Hospitalization)
  Sender: FDA-Public Use
  Company Number: US-MYLANLABS-2023M1118225

PATIENT
  Sex: Male

DRUGS (3)
  1. NEURONTIN [Suspect]
     Active Substance: GABAPENTIN
     Indication: Diabetic neuropathy
     Dosage: 300 MILLIGRAM, TID (TAKE 1 CAPSULE 300 MG TOTAL BY MOUTH THREE TIMES DAILY)
     Route: 048
  2. COMIRNATY (TOZINAMERAN) [Suspect]
     Active Substance: TOZINAMERAN
     Indication: COVID-19 immunisation
     Dosage: UNK
     Route: 065
  3. IBUPROFEN [Concomitant]
     Active Substance: IBUPROFEN
     Dosage: UNK
     Route: 065

REACTIONS (2)
  - Muscle spasms [Unknown]
  - Off label use [Unknown]
